FAERS Safety Report 19641824 (Version 2)
Quarter: 2021Q3

REPORT INFORMATION
  Report Type: Spontaneous
  Country: US (occurrence: US)
  Receive Date: 20210730
  Receipt Date: 20210901
  Transmission Date: 20211014
  Serious: Yes (Other)
  Sender: FDA-Public Use
  Company Number: US-PFIZER INC-2021906751

PATIENT
  Age: 78 Year
  Sex: Female
  Weight: 51.71 kg

DRUGS (5)
  1. OMEPRAZOLE. [Concomitant]
     Active Substance: OMEPRAZOLE
     Indication: GASTROOESOPHAGEAL REFLUX DISEASE
     Dosage: 40 MG, 1X/DAY
     Dates: start: 2019
  2. FASLODEX [Concomitant]
     Active Substance: FULVESTRANT
     Indication: NEOPLASM MALIGNANT
     Dosage: UNK
  3. IBRANCE [Suspect]
     Active Substance: PALBOCICLIB
     Indication: METASTASIS
  4. IBRANCE [Suspect]
     Active Substance: PALBOCICLIB
     Indication: METASTASIS
     Dosage: 75 MG, CYCLIC (FOR 21 DAYS THEN OFF FOR 7 DAYS)
     Dates: start: 201607
  5. TRANDOLAPRIL. [Concomitant]
     Active Substance: TRANDOLAPRIL
     Indication: HYPERTENSION
     Dosage: 2 MG, 1X/DAY
     Dates: start: 2020

REACTIONS (6)
  - Contusion [Unknown]
  - Vascular rupture [Unknown]
  - Haemorrhage [Unknown]
  - Limb injury [Not Recovered/Not Resolved]
  - Platelet count decreased [Unknown]
  - Red blood cell count decreased [Unknown]

NARRATIVE: CASE EVENT DATE: 20210623
